FAERS Safety Report 19793474 (Version 1)
Quarter: 2021Q3

REPORT INFORMATION
  Report Type: Spontaneous
  Country: CN (occurrence: CN)
  Receive Date: 20210906
  Receipt Date: 20210906
  Transmission Date: 20211014
  Serious: Yes (Hospitalization)
  Sender: FDA-Public Use
  Company Number: CN-PFIZER INC-202101119561

PATIENT
  Age: 33 Year
  Sex: Male
  Weight: 145 kg

DRUGS (1)
  1. CYTOSAR [Suspect]
     Active Substance: CYTARABINE
     Indication: ACUTE LYMPHOCYTIC LEUKAEMIA
     Dosage: 4000 MG, 2X/DAY
     Route: 041
     Dates: start: 20210730, end: 20210802

REACTIONS (4)
  - Neutrophil count increased [Unknown]
  - C-reactive protein increased [Recovering/Resolving]
  - White blood cell count increased [Unknown]
  - Myelosuppression [Recovering/Resolving]

NARRATIVE: CASE EVENT DATE: 20210812
